FAERS Safety Report 12989002 (Version 1)
Quarter: 2016Q4

REPORT INFORMATION
  Report Type: Spontaneous
  Country: IT (occurrence: IT)
  Receive Date: 20161201
  Receipt Date: 20161201
  Transmission Date: 20170207
  Serious: Yes (Hospitalization)
  Sender: FDA-Public Use
  Company Number: IT-SUN PHARMACEUTICAL INDUSTRIES LTD-2016RR-128304

PATIENT
  Age: 32 Year
  Sex: Female
  Weight: 50 kg

DRUGS (1)
  1. PARACETAMOL [Suspect]
     Active Substance: ACETAMINOPHEN
     Indication: DRUG ABUSE
     Dosage: 15 G TOTAL
     Route: 048
     Dates: start: 20161019, end: 20161019

REACTIONS (3)
  - Feeling jittery [Unknown]
  - Suicide attempt [Unknown]
  - Drug abuse [Unknown]

NARRATIVE: CASE EVENT DATE: 20161019
